FAERS Safety Report 5900387-4 (Version None)
Quarter: 2008Q3

REPORT INFORMATION
  Report Type: 
  Country: None (occurrence: None)
  Receive Date: 20080926
  Receipt Date: 20080919
  Transmission Date: 20090109
  Serious: Yes (Other)
  Sender: FDA-Public Use
  Company Number: GB-JNJCH-2008021052

PATIENT
  Sex: Male

DRUGS (1)
  1. CALPOL INFANT SUSPENSION [Suspect]
     Indication: ACCIDENTAL EXPOSURE
     Dosage: TEXT:APROXIMATELY 80 ML
     Route: 048
     Dates: start: 20080810, end: 20080810

REACTIONS (3)
  - ACCIDENTAL EXPOSURE [None]
  - OVERDOSE [None]
  - PHARMACEUTICAL PRODUCT COMPLAINT [None]
